FAERS Safety Report 5188714-X (Version None)
Quarter: 2006Q4

REPORT INFORMATION
  Report Type: 
  Country: None (occurrence: None)
  Receive Date: 20061215
  Receipt Date: 20061207
  Transmission Date: 20070319
  Serious: Yes (Other)
  Sender: FDA-Public Use
  Company Number: 2006151046

PATIENT
  Sex: Male

DRUGS (7)
  1. XANAX [Suspect]
     Indication: BIPOLAR DISORDER
  2. GEODON [Suspect]
     Indication: BIPOLAR DISORDER
  3. ZOLOFT [Suspect]
  4. DEPAKOTE [Concomitant]
  5. SELLBUTRIN XL (BUPROPION HYDROCHLORIDE) [Concomitant]
  6. LISINOPRIL [Concomitant]
  7. PROZAC [Concomitant]

REACTIONS (4)
  - BIPOLAR DISORDER [None]
  - DEPRESSION [None]
  - HYPOMANIA [None]
  - MANIA [None]
